FAERS Safety Report 7790204-2 (Version None)
Quarter: 2011Q3

REPORT INFORMATION
  Report Type: 
  Country: None (occurrence: None)
  Receive Date: 20110930
  Receipt Date: 20110927
  Transmission Date: 20111222
  Serious: Yes (Death)
  Sender: FDA-Public Use
  Company Number: US-CELGENEUS-163-21880-11093332

PATIENT
  Sex: Female

DRUGS (10)
  1. DECADRON [Concomitant]
     Dosage: .5 MILLIGRAM
     Route: 065
  2. FOLIC ACID [Concomitant]
     Dosage: 1 MILLIGRAM
     Route: 065
  3. ASA LO-DOSE EC [Concomitant]
     Route: 065
  4. REVLIMID [Suspect]
     Dosage: 15 MILLIGRAM
     Route: 048
     Dates: start: 20110101
  5. FERROUS SULFATE TAB [Concomitant]
     Route: 065
  6. LESCOL XL [Concomitant]
     Dosage: 80 MILLIGRAM
     Route: 065
  7. TOPROL-XL [Concomitant]
     Dosage: 50 MILLIGRAM
     Route: 065
  8. REVLIMID [Suspect]
     Indication: MULTIPLE MYELOMA
     Dosage: 25 MILLIGRAM
     Route: 048
     Dates: start: 20101001
  9. CENTRUM SILVER [Concomitant]
     Route: 065
  10. PROTONIX [Concomitant]
     Dosage: 40 MILLIGRAM
     Route: 065

REACTIONS (1)
  - DEATH [None]
